FAERS Safety Report 16849503 (Version 2)
Quarter: 2020Q3

REPORT INFORMATION
  Report Type: Spontaneous
  Country: US (occurrence: US)
  Receive Date: 20190925
  Receipt Date: 20200810
  Transmission Date: 20201102
  Serious: Yes (Other)
  Sender: FDA-Public Use
  Company Number: US-GILEAD-2019-0429228

PATIENT
  Sex: Female
  Weight: 103.4 kg

DRUGS (12)
  1. TOPIRAMATE. [Concomitant]
     Active Substance: TOPIRAMATE
  2. ATRIPLA [Suspect]
     Active Substance: EFAVIRENZ\EMTRICITABINE\TENOFOVIR DISOPROXIL FUMARATE
     Indication: HIV INFECTION
     Dosage: UNK
     Route: 048
     Dates: start: 2010, end: 2016
  3. ALPRAZOLAM. [Concomitant]
     Active Substance: ALPRAZOLAM
  4. BUPROPION. [Concomitant]
     Active Substance: BUPROPION
  5. METFORMIN [Concomitant]
     Active Substance: METFORMIN HYDROCHLORIDE
  6. COMPLERA [Suspect]
     Active Substance: EMTRICITABINE\RILPIVIRINE HYDROCHLORIDE\TENOFOVIR DISOPROXIL FUMARATE
     Indication: HIV INFECTION
     Dosage: UNK
     Route: 048
     Dates: start: 2016, end: 201807
  7. ODEFSEY [Concomitant]
     Active Substance: EMTRICITABINE\RILPIVIRINE HYDROCHLORIDE\TENOFOVIR ALAFENAMIDE FUMARATE
  8. REYATAZ [Concomitant]
     Active Substance: ATAZANAVIR SULFATE
  9. TRUVADA [Suspect]
     Active Substance: EMTRICITABINE\TENOFOVIR DISOPROXIL FUMARATE
     Indication: HIV INFECTION
     Dosage: UNK
     Route: 048
     Dates: start: 2006, end: 2010
  10. NORVIR [Concomitant]
     Active Substance: RITONAVIR
  11. RISPERIDONE. [Concomitant]
     Active Substance: RISPERIDONE
  12. WELLBUTRIN [Concomitant]
     Active Substance: BUPROPION HYDROCHLORIDE

REACTIONS (9)
  - Emotional distress [Not Recovered/Not Resolved]
  - Muscular weakness [Unknown]
  - Economic problem [Not Recovered/Not Resolved]
  - Anhedonia [Not Recovered/Not Resolved]
  - Bone density decreased [Not Recovered/Not Resolved]
  - Anxiety [Not Recovered/Not Resolved]
  - Pain [Not Recovered/Not Resolved]
  - Osteoporosis [Unknown]
  - Pain in extremity [Unknown]
